FAERS Safety Report 21527984 (Version 1)
Quarter: 2022Q4

REPORT INFORMATION
  Report Type: Other
  Country: IN (occurrence: None)
  Receive Date: 20221031
  Receipt Date: 20221031
  Transmission Date: 20230113
  Serious: Yes (Death)
  Sender: FDA-Public Use
  Company Number: IN-ROCHE-3210102

PATIENT
  Age: 55 Year
  Sex: Male

DRUGS (1)
  1. TECENTRIQ [Suspect]
     Active Substance: ATEZOLIZUMAB
     Indication: Hepatocellular carcinoma
     Route: 041
     Dates: start: 20220804

REACTIONS (1)
  - Death [Fatal]

NARRATIVE: CASE EVENT DATE: 20221020
